FAERS Safety Report 9299101 (Version 2)
Quarter: 2013Q3

REPORT INFORMATION
  Report Type: Spontaneous
  Country: US (occurrence: US)
  Receive Date: 20130520
  Receipt Date: 20130725
  Transmission Date: 20140515
  Serious: No
  Sender: FDA-Public Use
  Company Number: US-B.I. PHARMACEUTICALS,INC./RIDGEFIELD-2013-BI-13836BP

PATIENT
  Sex: Female
  Weight: 56 kg

DRUGS (5)
  1. SPIRIVA [Suspect]
     Indication: CHRONIC OBSTRUCTIVE PULMONARY DISEASE
     Dosage: 18 MCG
     Route: 055
     Dates: start: 2004
  2. Q-VAR 80 [Concomitant]
     Indication: CHRONIC OBSTRUCTIVE PULMONARY DISEASE
     Route: 055
  3. PLAVIX [Concomitant]
     Indication: ANTICOAGULANT THERAPY
     Dosage: 75 MG
     Route: 048
     Dates: start: 201208
  4. DILAUDID [Concomitant]
     Indication: OSTEOARTHRITIS
     Route: 048
     Dates: start: 201202
  5. METHADONE [Concomitant]
     Indication: OSTEOARTHRITIS
     Dosage: 10 MG
     Route: 048
     Dates: start: 201202

REACTIONS (2)
  - Dyspnoea [Unknown]
  - Product quality issue [Unknown]
